FAERS Safety Report 4722943-1 (Version None)
Quarter: 2005Q3

REPORT INFORMATION
  Report Type: 
  Country: None (occurrence: None)
  Receive Date: 20050719
  Receipt Date: 20040907
  Transmission Date: 20060218
  Serious: Yes (Hospitalization, Other)
  Sender: FDA-Public Use
  Company Number: 2004231209US

PATIENT
  Age: 46 Year
  Sex: Male
  Weight: 108.8 kg

DRUGS (7)
  1. CELEBREX [Suspect]
     Indication: BACK PAIN
     Dosage: 200 MG, PRN, ORAL; 200 MG, BID
     Route: 048
     Dates: start: 19990101
  2. VICODIN [Concomitant]
  3. ASPIRIN [Concomitant]
  4. PLAVIX [Concomitant]
  5. ATENOLOL [Concomitant]
  6. WELLBUTRIN [Concomitant]
  7. PREVACID [Concomitant]

REACTIONS (3)
  - ACUTE MYOCARDIAL INFARCTION [None]
  - ANGINA PECTORIS [None]
  - STOMACH DISCOMFORT [None]
